FAERS Safety Report 13529933 (Version 1)
Quarter: 2017Q2

REPORT INFORMATION
  Report Type: Spontaneous
  Country: US (occurrence: US)
  Receive Date: 20170509
  Receipt Date: 20170509
  Transmission Date: 20170830
  Serious: No
  Sender: FDA-Public Use
  Company Number: US-ROCHE-GNE292423

PATIENT
  Age: 42 Year
  Sex: Female
  Weight: 103.31 kg

DRUGS (1)
  1. XOLAIR [Suspect]
     Active Substance: OMALIZUMAB
     Indication: ASTHMA
     Dosage: 225 MG, Q2W
     Route: 058
     Dates: start: 20090729

REACTIONS (3)
  - Alopecia [None]
  - Pain [None]
  - Musculoskeletal stiffness [Unknown]

NARRATIVE: CASE EVENT DATE: 20091003
